FAERS Safety Report 6463688-X (Version None)
Quarter: 2009Q4

REPORT INFORMATION
  Report Type: 
  Country: None (occurrence: None)
  Receive Date: 20091201
  Receipt Date: 20091119
  Transmission Date: 20100525
  Serious: No
  Sender: FDA-Public Use
  Company Number: US-B.I. PHARMACEUTICALS,INC./RIDGEFIELD-2009-BP-13541BP

PATIENT
  Sex: Female

DRUGS (4)
  1. SPIRIVA [Suspect]
     Indication: EMPHYSEMA
     Dosage: 18 MCG
     Route: 055
     Dates: start: 20040101
  2. SEREVENT [Concomitant]
     Indication: EMPHYSEMA
     Route: 055
  3. HYZAAR [Concomitant]
     Indication: HYPERTENSION
     Route: 048
     Dates: start: 20030101
  4. DETROL LA [Concomitant]
     Indication: URINARY INCONTINENCE
     Route: 048
     Dates: start: 20030101

REACTIONS (5)
  - DYSPNOEA [None]
  - FALL [None]
  - LIMB INJURY [None]
  - WOUND [None]
  - WOUND INFECTION [None]
